FAERS Safety Report 21310159 (Version 2)
Quarter: 2022Q3

REPORT INFORMATION
  Report Type: Spontaneous
  Country: JP (occurrence: JP)
  Receive Date: 20220909
  Receipt Date: 20220916
  Transmission Date: 20221027
  Serious: Yes (Other)
  Sender: FDA-Public Use
  Company Number: JP-TAKEDA-2022TJP069461

PATIENT
  Age: 8 Decade

DRUGS (2)
  1. ALUNBRIG [Suspect]
     Active Substance: BRIGATINIB
     Indication: Product used for unknown indication
     Dosage: UNK MILLIGRAM
     Route: 048
     Dates: start: 20220714
  2. ALUNBRIG [Suspect]
     Active Substance: BRIGATINIB
     Dosage: 60 MILLIGRAM
     Route: 048

REACTIONS (2)
  - Hypertension [Recovering/Resolving]
  - Pain in extremity [Unknown]
